FAERS Safety Report 7441050-0 (Version None)
Quarter: 2011Q2

REPORT INFORMATION
  Report Type: 
  Country: None (occurrence: None)
  Receive Date: 20110427
  Receipt Date: 20100728
  Transmission Date: 20111010
  Serious: No
  Sender: FDA-Public Use
  Company Number: PHHY2010US37983

PATIENT
  Sex: Female
  Weight: 73.86 kg

DRUGS (4)
  1. ADVIL [Concomitant]
     Indication: ARTHRALGIA
     Dosage: 200 MG
     Route: 048
     Dates: start: 20090801
  2. TASIGNA [Suspect]
     Indication: CHRONIC MYELOID LEUKAEMIA
     Dosage: 400 MG, BID
     Route: 048
     Dates: start: 20090409
  3. TASIGNA [Suspect]
     Dosage: 200 MG, TID
     Route: 048
  4. AMBIEN [Concomitant]
     Indication: SLEEP DISORDER
     Dosage: 5 MG
     Route: 048
     Dates: start: 20090801

REACTIONS (4)
  - ABDOMINAL DISCOMFORT [None]
  - FATIGUE [None]
  - INCORRECT DOSE ADMINISTERED [None]
  - LABELLED DRUG-FOOD INTERACTION MEDICATION ERROR [None]
